FAERS Safety Report 7009206-9 (Version None)
Quarter: 2010Q3

REPORT INFORMATION
  Report Type: 
  Country: None (occurrence: None)
  Receive Date: 20100923
  Receipt Date: 20100915
  Transmission Date: 20110219
  Serious: Yes (Hospitalization, Disabling)
  Sender: FDA-Public Use
  Company Number: JP-BAYER-200910996BYL

PATIENT
  Age: 59 Year
  Sex: Male

DRUGS (10)
  1. BETAFERON [Suspect]
     Indication: MULTIPLE SCLEROSIS
     Dosage: TOTAL DAILY DOSE: 8 MIU
     Route: 058
     Dates: start: 20010101
  2. BETAFERON [Suspect]
     Route: 058
     Dates: end: 20090527
  3. MUCOSTA [Concomitant]
     Route: 048
  4. PREDONINE [Concomitant]
     Dosage: TOTAL DAILY DOSE: 2.5 MG  UNIT DOSE: 5 MG
     Route: 048
  5. PREDONINE [Concomitant]
     Dosage: TOTAL DAILY DOSE: 5 MG  UNIT DOSE: 5 MG
     Route: 048
  6. SELBEX [Concomitant]
     Route: 048
  7. LOXONIN [Concomitant]
     Dosage: TOTAL DAILY DOSE: 60 MG
     Route: 048
     Dates: start: 20080801
  8. GABAPEN [Concomitant]
     Route: 048
     Dates: start: 20090101
  9. AMOBAN [Concomitant]
     Dosage: TOTAL DAILY DOSE: 10 MG
     Route: 048
     Dates: start: 20070601
  10. VIAGRA [Concomitant]
     Dosage: TOTAL DAILY DOSE: 50 MG
     Route: 048
     Dates: start: 20080301

REACTIONS (1)
  - NEPHROTIC SYNDROME [None]
